FAERS Safety Report 23502309 (Version 1)
Quarter: 2024Q1

REPORT INFORMATION
  Report Type: Spontaneous
  Country: US (occurrence: US)
  Receive Date: 20240208
  Receipt Date: 20240208
  Transmission Date: 20240410
  Serious: No
  Sender: FDA-Public Use
  Company Number: US-INTRA-CELLULAR THERAPIES, INC.-2023ICT00248

PATIENT
  Age: 69 Year
  Sex: Female
  Weight: 86.168 kg

DRUGS (11)
  1. CAPLYTA [Suspect]
     Active Substance: LUMATEPERONE
     Indication: Depression
     Dosage: 10.5 MG, 1X/DAY
     Route: 048
     Dates: start: 202301, end: 2023
  2. CAPLYTA [Suspect]
     Active Substance: LUMATEPERONE
     Dosage: 10.5 MG, EVERY 72 HOURS
     Route: 048
     Dates: start: 2023, end: 202304
  3. CAPLYTA [Suspect]
     Active Substance: LUMATEPERONE
     Dosage: 10.5 MG, EVERY 48 HOURS
     Route: 048
     Dates: start: 202304, end: 202304
  4. CAPLYTA [Suspect]
     Active Substance: LUMATEPERONE
     Dosage: 10.5 MG, EVERY 72 HOURS
     Route: 048
     Dates: start: 202304
  5. LAMICTAL [Concomitant]
     Active Substance: LAMOTRIGINE
  6. KLONOPIN [Concomitant]
     Active Substance: CLONAZEPAM
  7. HYDROXYZINE [Concomitant]
     Active Substance: HYDROXYZINE HYDROCHLORIDE
  8. OMEGA-3 FATTY ACIDS [Concomitant]
     Active Substance: OMEGA-3 FATTY ACIDS
  9. CALCIUM [Concomitant]
     Active Substance: CALCIUM
  10. VITAMIN C [Concomitant]
     Active Substance: ASCORBIC ACID
  11. AMINO ACIDS, SOURCE UNSPECIFIED [Concomitant]
     Active Substance: AMINO ACIDS, SOURCE UNSPECIFIED

REACTIONS (12)
  - Anxiety [Unknown]
  - Anger [Recovering/Resolving]
  - Aggression [Recovered/Resolved]
  - Muscle strength abnormal [Recovered/Resolved]
  - Back pain [Unknown]
  - Hyperhidrosis [Recovering/Resolving]
  - Flushing [Recovering/Resolving]
  - Erythema [Recovering/Resolving]
  - Blood triglycerides increased [Unknown]
  - Headache [Recovering/Resolving]
  - Drug ineffective for unapproved indication [Unknown]
  - Blood cholesterol increased [Unknown]

NARRATIVE: CASE EVENT DATE: 20230101
